FAERS Safety Report 23967525 (Version 1)
Quarter: 2024Q2

REPORT INFORMATION
  Report Type: Spontaneous
  Country: US (occurrence: None)
  Receive Date: 20240611
  Receipt Date: 20240611
  Transmission Date: 20240716
  Serious: Yes (Hospitalization)
  Sender: FDA-Public Use
  Company Number: None

PATIENT
  Age: 36 Year
  Sex: Female
  Weight: 77.1 kg

DRUGS (3)
  1. SKYRIZI [Suspect]
     Active Substance: RISANKIZUMAB-RZAA
     Indication: Psoriasis
     Dosage: OTHER FREQUENCY : EVERY 12 WEEKS;?
     Route: 058
     Dates: start: 20220701, end: 20240116
  2. SERTRALINE [Concomitant]
     Active Substance: SERTRALINE HYDROCHLORIDE
  3. Triamcinolone topical ointment [Concomitant]

REACTIONS (2)
  - Pneumonia [None]
  - Opportunistic infection [None]

NARRATIVE: CASE EVENT DATE: 20240110
